FAERS Safety Report 18851747 (Version 3)
Quarter: 2021Q1

REPORT INFORMATION
  Report Type: Spontaneous
  Country: BR (occurrence: BR)
  Receive Date: 20210205
  Receipt Date: 20210310
  Transmission Date: 20210420
  Serious: Yes (Death, Hospitalization, Other)
  Sender: FDA-Public Use
  Company Number: BR-SA-2021SA035435

PATIENT
  Age: 2 Year
  Sex: Male
  Weight: 11 kg

DRUGS (2)
  1. MYOZYME [Suspect]
     Active Substance: ALGLUCOSIDASE ALFA
     Indication: GLYCOGEN STORAGE DISEASE TYPE II
     Dosage: 20 MG/KG, Q15D
     Route: 041
     Dates: start: 20191030
  2. CARVEDILOL. [Concomitant]
     Active Substance: CARVEDILOL
     Dosage: 1 DF, QD
     Route: 048

REACTIONS (7)
  - SARS-CoV-2 sepsis [Fatal]
  - Cardio-respiratory arrest [Fatal]
  - Infection [Fatal]
  - COVID-19 [Fatal]
  - Leukocytosis [Fatal]
  - Septic shock [Fatal]
  - Pyrexia [Fatal]

NARRATIVE: CASE EVENT DATE: 20210126
